FAERS Safety Report 6303436-7 (Version None)
Quarter: 2009Q3

REPORT INFORMATION
  Report Type: 
  Country: None (occurrence: None)
  Receive Date: 20090810
  Receipt Date: 20090729
  Transmission Date: 20100115
  Serious: Yes (Other)
  Sender: FDA-Public Use
  Company Number: FR-PFIZER INC-2009247070

PATIENT
  Age: 61 Year

DRUGS (9)
  1. ARACYTINE [Suspect]
     Indication: ACUTE MYELOID LEUKAEMIA
     Dosage: 200 MG, UNK, CYCLE 1
     Route: 030
     Dates: start: 20081203
  2. ZAVEDOS [Suspect]
     Indication: ACUTE MYELOID LEUKAEMIA
     Dosage: 15.9 MG, UNK, CYCLE 1
     Route: 042
     Dates: start: 20081205
  3. DEXAMETHASONE [Suspect]
     Indication: ACUTE MYELOID LEUKAEMIA
     Dosage: 10 MG, UNK, CYCLE 1
     Route: 048
     Dates: start: 20081203
  4. TAZOCILLINE [Suspect]
     Dosage: 12 G, UNK
     Route: 042
     Dates: start: 20081203
  5. FORLAX [Suspect]
     Dosage: 3 DF, UNK
     Route: 048
     Dates: start: 20081205
  6. ATARAX [Concomitant]
     Dosage: 50 MG, UNK
     Route: 048
     Dates: start: 20081205, end: 20081205
  7. KAYEXALATE [Concomitant]
     Dosage: UNK
     Route: 048
     Dates: start: 20081207, end: 20081207
  8. EMEND [Concomitant]
     Dosage: UNK
     Route: 048
     Dates: end: 20081208
  9. FASTURTEC [Concomitant]
     Dosage: 16 MG, UNK
     Route: 042
     Dates: start: 20081203, end: 20081206

REACTIONS (1)
  - PANCREATITIS ACUTE [None]
